FAERS Safety Report 6489018-5 (Version None)
Quarter: 2009Q4

REPORT INFORMATION
  Report Type: 
  Country: None (occurrence: None)
  Receive Date: 20091210
  Receipt Date: 20090921
  Transmission Date: 20100525
  Serious: No
  Sender: FDA-Public Use
  Company Number: US-AMGEN-KDL365634

PATIENT
  Sex: Male
  Weight: 81.7 kg

DRUGS (7)
  1. ENBREL [Suspect]
     Indication: PSORIATIC ARTHROPATHY
  2. HUMIRA [Suspect]
     Indication: PSORIATIC ARTHROPATHY
     Route: 058
     Dates: start: 20090101, end: 20090701
  3. VICODIN [Concomitant]
  4. HYDROCODONE [Concomitant]
  5. CELECOXIB [Concomitant]
     Dates: start: 20090601
  6. FISH OIL [Concomitant]
  7. CLONAZEPAM [Concomitant]

REACTIONS (4)
  - BRONCHITIS [None]
  - DRUG EFFECT DECREASED [None]
  - ORAL CANDIDIASIS [None]
  - SKIN BURNING SENSATION [None]
